FAERS Safety Report 6725086-0 (Version None)
Quarter: 2010Q2

REPORT INFORMATION
  Report Type: 
  Country: None (occurrence: None)
  Receive Date: 20100514
  Receipt Date: 20100503
  Transmission Date: 20101027
  Serious: Yes (Hospitalization, Other)
  Sender: FDA-Public Use
  Company Number: US-BAYER-201014090NA

PATIENT
  Age: 29 Year
  Sex: Female
  Weight: 119 kg

DRUGS (12)
  1. YAZ [Suspect]
     Indication: ORAL CONTRACEPTION
     Route: 048
     Dates: start: 20080501
  2. MELOXICAM [Concomitant]
  3. HYDROCHLOROT [Concomitant]
  4. DIVALPROEX SODIUM [Concomitant]
  5. PROZAX [Concomitant]
  6. ALOPRAZOLAM [Concomitant]
  7. HYDROCHLORIAZIDE [Concomitant]
  8. YASMIN [Concomitant]
  9. PROZAC [Concomitant]
  10. XANAX [Concomitant]
  11. SUDAFED 12 HOUR [Concomitant]
  12. IV FLUID RESUSCITATION [Concomitant]
     Indication: CHOLECYSTITIS
     Route: 042

REACTIONS (2)
  - ABDOMINAL PAIN [None]
  - CHOLECYSTITIS [None]
